FAERS Safety Report 16260673 (Version 1)
Quarter: 2019Q2

REPORT INFORMATION
  Report Type: Report from Study
  Country: US (occurrence: US)
  Receive Date: 20190501
  Receipt Date: 20190501
  Transmission Date: 20190711
  Serious: Yes (Hospitalization)
  Sender: FDA-Public Use
  Company Number: US-UPSHER-SMITH LABORATORIES, LLC-2019USL00304

PATIENT

DRUGS (1)
  1. VIGADRONE [Suspect]
     Active Substance: VIGABATRIN
     Indication: INFANTILE SPASMS
     Dosage: UNK
     Dates: start: 20190307

REACTIONS (1)
  - Infantile spasms [Unknown]

NARRATIVE: CASE EVENT DATE: 2019
